FAERS Safety Report 4307891-3 (Version None)
Quarter: 2004Q1

REPORT INFORMATION
  Report Type: 
  Country: None (occurrence: None)
  Receive Date: 20040225
  Receipt Date: 20030127
  Transmission Date: 20041129
  Serious: Yes (Disabling)
  Sender: FDA-Public Use
  Company Number: WAES 0212USA01402

PATIENT
  Age: 62 Year
  Sex: Male
  Weight: 88.905 kg

DRUGS (2)
  1. ZOCOR [Suspect]
     Dosage: PO
     Route: 048
  2. PRINIVIL [Concomitant]

REACTIONS (2)
  - LABORATORY TEST ABNORMAL [None]
  - MYALGIA [None]
